FAERS Safety Report 6676451 (Version 2)
Quarter: 2020Q3

REPORT INFORMATION
  Report Type: Report from Study
  Country: US (occurrence: US)
  Receive Date: 20080624
  Receipt Date: 20080710
  Transmission Date: 20201104
  Serious: Yes (Death)
  Sender: FDA-Public Use
  Company Number: US-ROCHE-571063

PATIENT
  Age: 81 Year
  Sex: Female

DRUGS (1)
  1. IBANDRONIC ACID. [Suspect]
     Active Substance: IBANDRONIC ACID
     Indication: OSTEOPOROSIS
     Dosage: OTHER INDICATION: FOR BONES
     Route: 065
     Dates: start: 200404

REACTIONS (1)
  - Death [Fatal]

NARRATIVE: CASE EVENT DATE: 20080503
